FAERS Safety Report 23258821 (Version 1)
Quarter: 2023Q4

REPORT INFORMATION
  Report Type: Spontaneous
  Country: US (occurrence: None)
  Receive Date: 20231203
  Receipt Date: 20231203
  Transmission Date: 20240110
  Serious: No
  Sender: FDA-Public Use
  Company Number: None

PATIENT
  Age: 53 Year
  Sex: Female
  Weight: 65.25 kg

DRUGS (1)
  1. POLYVINYL ALCOHOL [Suspect]
     Active Substance: POLYVINYL ALCOHOL
     Indication: Dry eye
     Dosage: 1 DROPP EVERY 4 HOURS OPHTHALMIC?
     Route: 047
     Dates: start: 20230103, end: 20230203

REACTIONS (1)
  - Eye irritation [None]

NARRATIVE: CASE EVENT DATE: 20230103
